FAERS Safety Report 21331900 (Version 1)
Quarter: 2022Q3

REPORT INFORMATION
  Report Type: Spontaneous
  Country: BR (occurrence: BR)
  Receive Date: 20220914
  Receipt Date: 20220914
  Transmission Date: 20221027
  Serious: Yes (Life-Threatening, Other)
  Sender: FDA-Public Use
  Company Number: BR-TAKEDA-2022TUS063677

PATIENT
  Sex: Male
  Weight: 76 kg

DRUGS (3)
  1. DEXILANT [Suspect]
     Active Substance: DEXLANSOPRAZOLE
     Indication: Oesophagitis
     Dosage: 60 MILLIGRAM, QD
     Route: 048
  2. FLUTICASONE PROPIONATE [Concomitant]
     Active Substance: FLUTICASONE PROPIONATE
     Indication: Oesophagitis
     Dosage: UNK
     Route: 065
  3. Esoprazole [Concomitant]
     Indication: Helicobacter infection
     Dosage: UNK
     Route: 065

REACTIONS (7)
  - Choking [Recovered/Resolved]
  - Oesophageal compression [Recovered/Resolved]
  - Off label use [Unknown]
  - Helicobacter infection [Unknown]
  - Dysphagia [Recovered/Resolved]
  - Feeling abnormal [Unknown]
  - Fear [Unknown]
